FAERS Safety Report 25074831 (Version 1)
Quarter: 2025Q1

REPORT INFORMATION
  Report Type: Spontaneous
  Country: CA (occurrence: CA)
  Receive Date: 20250313
  Receipt Date: 20250313
  Transmission Date: 20250409
  Serious: Yes (Death)
  Sender: ACCORD
  Company Number: None

PATIENT
  Age: 76 Year
  Sex: Male

DRUGS (21)
  1. ATORVASTATIN [Suspect]
     Active Substance: ATORVASTATIN
     Indication: Blood cholesterol increased
  2. ESOMEPRAZOLE [Suspect]
     Active Substance: ESOMEPRAZOLE
     Indication: Gastrooesophageal reflux disease
  3. ACETAMINOPHEN [Concomitant]
     Active Substance: ACETAMINOPHEN
  4. ALMAGEL [Concomitant]
     Route: 048
  5. AMITRIPTYLINE [Concomitant]
     Active Substance: AMITRIPTYLINE
  6. ASPIRIN [Concomitant]
     Active Substance: ASPIRIN
  7. ATROPINE [Concomitant]
     Active Substance: ATROPINE
  8. CALCIUM [Concomitant]
     Active Substance: CALCIUM
  9. CLONAZEPAM [Concomitant]
     Active Substance: CLONAZEPAM
  10. COLISTIN [Concomitant]
     Active Substance: COLISTIN
  11. FLUTICASONE [Concomitant]
     Active Substance: FLUTICASONE
  12. HEPARIN SODIUM [Concomitant]
     Active Substance: HEPARIN SODIUM
     Route: 042
  13. INSULIN NOS [Concomitant]
     Active Substance: INSULIN NOS
  14. IPRATROPIUM [Concomitant]
     Active Substance: IPRATROPIUM
  15. LORAZEPAM [Concomitant]
     Active Substance: LORAZEPAM
  16. MEROPENEM [Concomitant]
     Active Substance: MEROPENEM
     Route: 042
  17. METOPROLOL [Concomitant]
     Active Substance: METOPROLOL
  18. ALBUTEROL [Concomitant]
     Active Substance: ALBUTEROL
  19. SERTRALINE [Concomitant]
     Active Substance: SERTRALINE HYDROCHLORIDE
  20. TOBRAMYCIN [Concomitant]
     Active Substance: TOBRAMYCIN
  21. VANCOMYCIN [Concomitant]
     Active Substance: VANCOMYCIN

REACTIONS (1)
  - Rhabdomyolysis [Fatal]
